FAERS Safety Report 19630191 (Version 4)
Quarter: 2021Q4

REPORT INFORMATION
  Report Type: Spontaneous
  Country: US (occurrence: US)
  Receive Date: 20210728
  Receipt Date: 20211221
  Transmission Date: 20220303
  Serious: Yes (Hospitalization)
  Sender: FDA-Public Use
  Company Number: US-PFIZER INC-2020277595

PATIENT
  Age: 80 Year
  Sex: Female

DRUGS (2)
  1. EUCRISA [Suspect]
     Active Substance: CRISABOROLE
     Indication: Dermatitis
     Dosage: 2X/DAY (1 APPLICATION TOPICALLY TO AFFECTED AREAS, TWICE DAILY)
     Route: 061
  2. EUCRISA [Suspect]
     Active Substance: CRISABOROLE
     Indication: Pruritus

REACTIONS (7)
  - Myocardial infarction [Recovering/Resolving]
  - Anxiety [Unknown]
  - Crying [Unknown]
  - Cough [Unknown]
  - Depressed mood [Unknown]
  - Stress [Unknown]
  - Off label use [Unknown]
